FAERS Safety Report 9166544 (Version 2)
Quarter: 2013Q4

REPORT INFORMATION
  Report Type: Spontaneous
  Country: CA (occurrence: CA)
  Receive Date: 20130315
  Receipt Date: 20131202
  Transmission Date: 20140711
  Serious: Yes (Hospitalization, Other)
  Sender: FDA-Public Use
  Company Number: CA-AMGEN-CANSP2013015649

PATIENT
  Age: 87 Year
  Sex: Female
  Weight: 67 kg

DRUGS (14)
  1. PROLIA [Suspect]
     Indication: OSTEOPOROSIS
     Dosage: 60 MG, UNK
     Route: 058
     Dates: start: 20120403
  2. PREDNISONE                         /00044702/ [Concomitant]
     Indication: RHEUMATOID ARTHRITIS
     Dosage: 5 UNK, QD
     Route: 048
     Dates: start: 1990
  3. METHOTREXATE                       /00113802/ [Concomitant]
     Indication: RHEUMATOID ARTHRITIS
     Dosage: 7.5 UNK, QD
     Route: 048
     Dates: start: 1973
  4. SOTALOL                            /00371502/ [Concomitant]
     Indication: CARDIAC DISORDER
     Dosage: 80 UNK, BID
     Route: 048
     Dates: start: 1990
  5. IRBESARTAN [Concomitant]
     Indication: HYPERTENSION
     Dosage: 150 UNK, QD
     Route: 048
     Dates: start: 1994, end: 20120621
  6. CELEBREX [Concomitant]
     Indication: RHEUMATOID ARTHRITIS
     Dosage: 100 UNK, BID
     Route: 048
     Dates: start: 1996, end: 20130105
  7. FLOVENT [Concomitant]
     Dosage: 250 2 PUFFS 2 TIMES/WK
  8. VENTOLIN                           /00139501/ [Concomitant]
     Dosage: UNK UNK, 2 TIMES/WK
  9. FOLATE [Concomitant]
     Dosage: 5 UNK, UNK
  10. PANTOLOC                           /01263204/ [Concomitant]
     Dosage: 40 UNK, UNK
  11. AVAMYS [Concomitant]
  12. SOFRACORT [Concomitant]
  13. BROMAZEPAM [Concomitant]
     Dosage: 1.5 UNK, AS NECESSARY
  14. AVAPRO [Concomitant]
     Dosage: 150 UNK, UNK

REACTIONS (6)
  - Pulmonary embolism [Recovered/Resolved]
  - Influenza [Recovered/Resolved]
  - Upper respiratory tract infection [Recovered/Resolved]
  - Chronic obstructive pulmonary disease [Unknown]
  - Atelectasis [Unknown]
  - Fatigue [Unknown]
